FAERS Safety Report 8434524-7 (Version None)
Quarter: 2012Q2

REPORT INFORMATION
  Report Type: 
  Country: None (occurrence: None)
  Receive Date: 20120614
  Receipt Date: 20120606
  Transmission Date: 20120825
  Serious: No
  Sender: FDA-Public Use
  Company Number: US-BIOGENIDEC-2012BI020200

PATIENT
  Sex: Female

DRUGS (1)
  1. TYSABRI [Suspect]
     Indication: MULTIPLE SCLEROSIS
     Route: 042
     Dates: start: 20080208

REACTIONS (13)
  - EYE DISORDER [None]
  - INSOMNIA [None]
  - GASTROENTERITIS [None]
  - NASOPHARYNGITIS [None]
  - NASAL CONGESTION [None]
  - ANXIETY [None]
  - MULTIPLE SCLEROSIS RELAPSE [None]
  - OROPHARYNGEAL PAIN [None]
  - DECREASED IMMUNE RESPONSIVENESS [None]
  - HEART RATE INCREASED [None]
  - PHARYNGEAL DISORDER [None]
  - FATIGUE [None]
  - EAR INFECTION [None]
